FAERS Safety Report 7687647-4 (Version None)
Quarter: 2011Q3

REPORT INFORMATION
  Report Type: 
  Country: None (occurrence: None)
  Receive Date: 20110817
  Receipt Date: 20110808
  Transmission Date: 20111222
  Serious: Yes (Other)
  Sender: FDA-Public Use
  Company Number: US-CEPHALON-US016985

PATIENT
  Sex: Female
  Weight: 100 kg

DRUGS (7)
  1. PROVIGIL [Suspect]
     Indication: SOMNOLENCE
     Route: 048
  2. LORCET-HD [Concomitant]
     Indication: BACK PAIN
     Dosage: 10/650MG
     Route: 048
  3. PAXIL [Concomitant]
     Indication: ANXIETY
     Route: 048
  4. LORCET-HD [Concomitant]
     Indication: NECK PAIN
  5. AMBIEN [Concomitant]
     Indication: SLEEP DISORDER
     Route: 065
  6. CYMBALTA [Concomitant]
     Indication: DEPRESSION
     Route: 065
  7. XANAX [Concomitant]
     Indication: DEPRESSION
     Route: 065

REACTIONS (5)
  - HEADACHE [None]
  - INTENTIONAL DRUG MISUSE [None]
  - DEPRESSION [None]
  - DECREASED APPETITE [None]
  - HEART RATE INCREASED [None]
